FAERS Safety Report 4492139-X (Version None)
Quarter: 2004Q3

REPORT INFORMATION
  Report Type: 
  Country: None (occurrence: None)
  Receive Date: 20040924
  Receipt Date: 20040519
  Transmission Date: 20050211
  Serious: Yes (Life-Threatening)
  Sender: FDA-Public Use
  Company Number: 04P-163-0261444-00

PATIENT
  Age: 38 Year
  Sex: Male

DRUGS (3)
  1. KALETRA [Suspect]
     Indication: HIV INFECTION
     Dosage: 666 MG, 2 IN 1 D, PER ORAL
     Route: 048
     Dates: start: 20040310
  2. EFAVIRENZ [Suspect]
     Indication: HIV INFECTION
     Dosage: 600 MG, 1 IN 1 D, PER ORAL
     Route: 048
     Dates: start: 20040310
  3. LOMOTIL [Concomitant]

REACTIONS (1)
  - HYPERTRIGLYCERIDAEMIA [None]
